FAERS Safety Report 10696678 (Version 1)
Quarter: 2015Q1

REPORT INFORMATION
  Report Type: Spontaneous
  Country: TW (occurrence: TW)
  Receive Date: 20150107
  Receipt Date: 20150107
  Transmission Date: 20150721
  Serious: Yes (Other)
  Sender: FDA-Public Use
  Company Number: PHHY2015TW000541

PATIENT
  Age: 24 Year
  Sex: Male

DRUGS (1)
  1. SALBUTAMOL [Suspect]
     Active Substance: ALBUTEROL
     Indication: ASTHMA
     Route: 055

REACTIONS (9)
  - Thyrotoxic periodic paralysis [Recovered/Resolved]
  - Diplegia [Recovered/Resolved]
  - Left ventricular hypertrophy [Recovered/Resolved]
  - Tachycardia [Recovered/Resolved]
  - Hypokalaemia [Recovered/Resolved]
  - Areflexia [Recovered/Resolved]
  - Hyperthyroidism [Unknown]
  - Goitre [Unknown]
  - Basedow^s disease [Unknown]
